FAERS Safety Report 10008894 (Version 2)
Quarter: 2014Q1

REPORT INFORMATION
  Report Type: Spontaneous
  Country: US (occurrence: US)
  Receive Date: 20140313
  Receipt Date: 20140313
  Transmission Date: 20141002
  Serious: Yes (Other)
  Sender: FDA-Public Use
  Company Number: US-INCYTE CORPORATION-2012IN000629

PATIENT
  Age: 64 Year
  Sex: Male
  Weight: 85.9 kg

DRUGS (12)
  1. JAKAFI [Suspect]
     Indication: MYELOFIBROSIS
     Dosage: 10 MG, BID
     Route: 048
  2. HUMALOG [Concomitant]
     Dosage: 75/25 14 UNITS, BID
  3. JANUVIA [Concomitant]
     Dosage: 100 MG, QD
     Route: 048
  4. LOSARTAN [Concomitant]
     Dosage: 100 MG, QD
     Route: 048
  5. METFORMIN [Concomitant]
     Dosage: 1000 MG, BID
     Route: 048
  6. CARVEDILOL [Concomitant]
     Dosage: 25 MG, BID
     Route: 048
  7. MAGNESIUM [Concomitant]
     Dosage: 400 MG, QD
     Route: 048
  8. DICLOFENAC [Concomitant]
     Dosage: 75 MG, QD PM
     Route: 048
  9. HYDROCODONE [Concomitant]
     Dosage: 5/500 MG QD, PM
     Route: 048
  10. CARISOPRODOL [Concomitant]
     Dosage: 350 MG, QD PM
     Route: 048
  11. VIAGRA [Concomitant]
     Dosage: 100 MG, QD PM
     Route: 048
  12. TYLENOL PM [Concomitant]
     Dosage: UNK, QD PM
     Route: 048

REACTIONS (1)
  - Haemoglobin decreased [Unknown]
